FAERS Safety Report 25975690 (Version 2)
Quarter: 2025Q4

REPORT INFORMATION
  Report Type: Spontaneous
  Country: CN (occurrence: CN)
  Receive Date: 20251029
  Receipt Date: 20251114
  Transmission Date: 20260118
  Serious: Yes (Hospitalization)
  Sender: NOVO NORDISK
  Company Number: CN-NOVOPROD-1545030

PATIENT
  Sex: Female

DRUGS (3)
  1. RYZODEG 70/30 [Suspect]
     Active Substance: INSULIN ASPART\INSULIN DEGLUDEC
     Indication: Type 2 diabetes mellitus
     Dosage: 10 IU, BID
  2. GLUCOBAY [Concomitant]
     Active Substance: ACARBOSE
     Dosage: (1 TABLET, TID)
  3. PIOGLITAZONE HYDROCHLORIDE [Concomitant]
     Active Substance: PIOGLITAZONE HYDROCHLORIDE
     Dosage: ( 1 TABLET, QD)

REACTIONS (2)
  - Lower limb fracture [Unknown]
  - Blood glucose abnormal [Unknown]
